FAERS Safety Report 6122185-1 (Version None)
Quarter: 2009Q1

REPORT INFORMATION
  Report Type: 
  Country: None (occurrence: None)
  Receive Date: 20090316
  Receipt Date: 20090308
  Transmission Date: 20090719
  Serious: Yes (Other)
  Sender: FDA-Public Use
  Company Number: 212832

PATIENT
  Age: 17 Year
  Sex: Female

DRUGS (2)
  1. METHOTREXATE [Suspect]
     Indication: BONE SARCOMA
  2. BACTRIM [Suspect]
     Indication: ANTIFUNGAL PROPHYLAXIS

REACTIONS (1)
  - CLOSTRIDIUM DIFFICILE COLITIS [None]
